FAERS Safety Report 5604047-9 (Version None)
Quarter: 2008Q1

REPORT INFORMATION
  Report Type: 
  Country: None (occurrence: None)
  Receive Date: 20080128
  Receipt Date: 20080116
  Transmission Date: 20080703
  Serious: Yes (Hospitalization)
  Sender: FDA-Public Use
  Company Number: PHHY2008AT00541

PATIENT
  Sex: Male
  Weight: 78 kg

DRUGS (8)
  1. CANDESARTAN CILEXETIL [Concomitant]
     Dosage: 8/28
     Dates: start: 20010101
  2. NORVASC [Concomitant]
     Dosage: 5 MG
     Dates: start: 20010101
  3. EXFORGE [Suspect]
     Indication: HYPERTENSION
     Dosage: 10/160
     Dates: start: 20071128
  4. DIAMICRON [Concomitant]
     Indication: DIABETES MELLITUS
     Dosage: 30 MG DAILY
  5. TEGRETOL [Concomitant]
     Indication: TRIGEMINAL NEURALGIA
     Dosage: 400 MG DAILY
  6. PLAVIX [Concomitant]
     Indication: CORONARY ARTERY DISEASE
     Dosage: 75/28
  7. SERETIDE [Concomitant]
     Indication: CHRONIC OBSTRUCTIVE PULMONARY DISEASE
     Dosage: 2 PUMP SHIFTS DAILY
  8. SULTANOL [Concomitant]
     Indication: CHRONIC OBSTRUCTIVE PULMONARY DISEASE
     Dosage: ON DEMAND

REACTIONS (1)
  - CIRCULATORY COLLAPSE [None]
